FAERS Safety Report 24007628 (Version 1)
Quarter: 2024Q2

REPORT INFORMATION
  Report Type: Spontaneous
  Country: AU (occurrence: AU)
  Receive Date: 20240625
  Receipt Date: 20240625
  Transmission Date: 20240716
  Serious: Yes (Hospitalization, Other)
  Sender: FDA-Public Use
  Company Number: AU-HALEON-2181437

PATIENT
  Sex: Female

DRUGS (3)
  1. PANADOL [Suspect]
     Active Substance: ACETAMINOPHEN
     Indication: Headache
  2. PANADOL COLD AND FLU [Suspect]
     Active Substance: ACETAMINOPHEN\CHLORPHENIRAMINE MALEATE\PHENYLEPHRINE HYDROCHLORIDE
     Indication: Nasopharyngitis
  3. PANADOL COLD AND FLU [Suspect]
     Active Substance: ACETAMINOPHEN\CHLORPHENIRAMINE MALEATE\PHENYLEPHRINE HYDROCHLORIDE
     Indication: Headache

REACTIONS (3)
  - Liver disorder [Unknown]
  - Labelled drug-drug interaction medication error [Unknown]
  - Product use in unapproved indication [Unknown]
